FAERS Safety Report 7831496-0 (Version None)
Quarter: 2011Q4

REPORT INFORMATION
  Report Type: 
  Country: None (occurrence: None)
  Receive Date: 20111021
  Receipt Date: 20111021
  Transmission Date: 20120403
  Serious: Yes (Hospitalization)
  Sender: FDA-Public Use
  Company Number: None

PATIENT
  Age: 42 Year
  Sex: Female

DRUGS (2)
  1. NAROPIN [Suspect]
     Indication: DRUG ADMINISTRATION ERROR
     Dates: start: 20110824, end: 20110824
  2. ACETAMINOPHEN -OFIRMEV- [Concomitant]
     Indication: PROCEDURAL PAIN
     Dates: start: 20110824, end: 20110824

REACTIONS (2)
  - PRODUCT CONTAINER ISSUE [None]
  - WRONG DRUG ADMINISTERED [None]
